FAERS Safety Report 7574942-2 (Version None)
Quarter: 2011Q2

REPORT INFORMATION
  Report Type: 
  Country: None (occurrence: None)
  Receive Date: 20110627
  Receipt Date: 20110614
  Transmission Date: 20111010
  Serious: Yes (Other)
  Sender: FDA-Public Use
  Company Number: CH-ELI_LILLY_AND_COMPANY-CH201106004287

PATIENT
  Age: 77 Year
  Sex: Female
  Weight: 68 kg

DRUGS (5)
  1. VOLTAREN [Concomitant]
     Indication: PAIN
     Dosage: UNK, PRN
     Route: 048
     Dates: start: 20090101, end: 20110530
  2. MEFENAMIC ACID [Concomitant]
     Indication: PAIN
     Dosage: 500 MG, PRN
     Dates: start: 20090101, end: 20110530
  3. NITRAZEPAM [Concomitant]
     Indication: SLEEP DISORDER
     Dosage: 5 MG, QD
     Route: 048
     Dates: start: 20090101
  4. FORTEO [Suspect]
     Indication: OSTEOPOROSIS
     Dosage: 20 UG, QD
     Route: 058
     Dates: start: 20091203
  5. TRAMADOL HCL [Concomitant]
     Indication: PAIN
     Dosage: 6 DF, QD
     Dates: start: 20090101

REACTIONS (1)
  - DEEP VEIN THROMBOSIS [None]
